FAERS Safety Report 18916872 (Version 5)
Quarter: 2021Q2

REPORT INFORMATION
  Report Type: Spontaneous
  Country: US (occurrence: US)
  Receive Date: 20210219
  Receipt Date: 20210427
  Transmission Date: 20210717
  Serious: Yes (Hospitalization, Other)
  Sender: FDA-Public Use
  Company Number: US-BAYER-2021-068934

PATIENT
  Age: 29 Year
  Sex: Male

DRUGS (6)
  1. KOGENATE FS [Suspect]
     Active Substance: ANTIHEMOPHILIC FACTOR, HUMAN RECOMBINANT
     Dosage: 1 DF, ONCE; TO TREAT LEFT ARM BLEED
     Route: 042
     Dates: start: 20210322
  2. KOGENATE FS [Suspect]
     Active Substance: ANTIHEMOPHILIC FACTOR, HUMAN RECOMBINANT
     Dosage: 3800 U, TWICE DAILY; FOR CAR ACCIDENT
     Route: 042
  3. KOGENATE FS [Suspect]
     Active Substance: ANTIHEMOPHILIC FACTOR, HUMAN RECOMBINANT
     Dosage: 3765 U
     Route: 042
  4. KOGENATE FS [Suspect]
     Active Substance: ANTIHEMOPHILIC FACTOR, HUMAN RECOMBINANT
     Dosage: 2800 IU, TID, FOR THE EVENT LEFT FOREARM BLEED TREATMENT
     Route: 042
     Dates: start: 20210405
  5. KOGENATE FS [Suspect]
     Active Substance: ANTIHEMOPHILIC FACTOR, HUMAN RECOMBINANT
     Dosage: 1 DF, ONCE; TO TREAT CALF BLEED
     Route: 042
     Dates: start: 20210211
  6. KOGENATE FS [Suspect]
     Active Substance: ANTIHEMOPHILIC FACTOR, HUMAN RECOMBINANT
     Dosage: 3800 U
     Route: 042

REACTIONS (4)
  - Muscle haemorrhage [None]
  - Haemorrhage [Not Recovered/Not Resolved]
  - Haemorrhage [None]
  - Road traffic accident [None]

NARRATIVE: CASE EVENT DATE: 20210210
